FAERS Safety Report 22198511 (Version 1)
Quarter: 2023Q2

REPORT INFORMATION
  Report Type: Spontaneous
  Country: US (occurrence: US)
  Receive Date: 20230411
  Receipt Date: 20230411
  Transmission Date: 20230721
  Serious: No
  Sender: FDA-Public Use
  Company Number: US-SA-SAC20230404000296

PATIENT
  Sex: Female

DRUGS (1)
  1. AMBIEN [Suspect]
     Active Substance: ZOLPIDEM TARTRATE
     Dosage: 10 AMBIEN A DAY
     Route: 065

REACTIONS (11)
  - Nervousness [Unknown]
  - Memory impairment [Unknown]
  - Dysphonia [Unknown]
  - Mydriasis [Unknown]
  - Mania [Unknown]
  - Agitation [Unknown]
  - Confusional state [Unknown]
  - Hyperhidrosis [Unknown]
  - Tremor [Unknown]
  - Somnolence [Unknown]
  - Overdose [Unknown]
